FAERS Safety Report 24332632 (Version 1)
Quarter: 2024Q3

REPORT INFORMATION
  Report Type: Other
  Country: FR (occurrence: FR)
  Receive Date: 20240918
  Receipt Date: 20240918
  Transmission Date: 20241017
  Serious: Yes (Hospitalization)
  Sender: B BRAUN
  Company Number: FR-B.Braun Medical Inc.-2161753

PATIENT
  Age: 66 Year
  Sex: Female

DRUGS (4)
  1. LIDOCAINE HYDROCHLORIDE [Suspect]
     Active Substance: LIDOCAINE HYDROCHLORIDE
     Indication: Local anaesthesia
  2. NALBUPHINE HYDROCHLORIDE [Suspect]
     Active Substance: NALBUPHINE HYDROCHLORIDE
  3. BISOPROLOL. [Concomitant]
     Active Substance: BISOPROLOL FUMARATE
  4. MIDAZOLAM [Suspect]
     Active Substance: MIDAZOLAM

REACTIONS (1)
  - Drug ineffective [Unknown]
